FAERS Safety Report 12818970 (Version 1)
Quarter: 2016Q4

REPORT INFORMATION
  Report Type: Other
  Country: CA (occurrence: CA)
  Receive Date: 20161006
  Receipt Date: 20161006
  Transmission Date: 20170207
  Serious: Yes (Other)
  Sender: FDA-Public Use
  Company Number: CA-APOTEX-2016AP012567

PATIENT
  Age: 74 Year
  Sex: Male
  Weight: 79.37 kg

DRUGS (2)
  1. ROSUVASTATIN TEVA [Suspect]
     Active Substance: ROSUVASTATIN
     Indication: BLOOD CHOLESTEROL ABNORMAL
     Dosage: 5 MG, QD
     Route: 048
  2. APO-ROSUVASTATIN [Suspect]
     Active Substance: ROSUVASTATIN
     Indication: PRODUCT USED FOR UNKNOWN INDICATION
     Dosage: UNK
     Route: 065

REACTIONS (2)
  - Penile swelling [Not Recovered/Not Resolved]
  - Penile blister [Not Recovered/Not Resolved]
